FAERS Safety Report 17581977 (Version 1)
Quarter: 2020Q1

REPORT INFORMATION
  Report Type: Spontaneous
  Country: US (occurrence: US)
  Receive Date: 20200323
  Receipt Date: 20200323
  Transmission Date: 20200409
  Serious: No
  Sender: FDA-Public Use
  Company Number: None

PATIENT
  Age: 65 Year
  Sex: Female

DRUGS (1)
  1. EXEMESTANE 25 MG HIKMA [Suspect]
     Active Substance: EXEMESTANE
     Indication: BREAST CANCER FEMALE
     Route: 048

REACTIONS (2)
  - Headache [None]
  - Transient ischaemic attack [None]

NARRATIVE: CASE EVENT DATE: 201912
